FAERS Safety Report 6796079-2 (Version None)
Quarter: 2010Q2

REPORT INFORMATION
  Report Type: 
  Country: None (occurrence: None)
  Receive Date: 20100625
  Receipt Date: 20100514
  Transmission Date: 20101027
  Serious: Yes (Death)
  Sender: FDA-Public Use
  Company Number: US-BAXTER-2010BH002723

PATIENT
  Age: 58 Year
  Sex: Female

DRUGS (15)
  1. HEPARIN SODIUM [Suspect]
     Indication: PULMONARY EMBOLISM
     Route: 042
     Dates: start: 20071126, end: 20071126
  2. HEPARIN SODIUM [Suspect]
     Indication: DIALYSIS
     Route: 042
     Dates: start: 20071126, end: 20071126
  3. HEPARIN SODIUM [Suspect]
     Indication: PROPHYLAXIS
     Route: 042
     Dates: start: 20071126, end: 20071126
  4. HEPARIN SODIUM [Suspect]
     Route: 058
     Dates: start: 20071211, end: 20071213
  5. HEPARIN SODIUM [Suspect]
     Route: 058
     Dates: start: 20071211, end: 20071213
  6. HEPARIN SODIUM [Suspect]
     Route: 058
     Dates: start: 20071211, end: 20071213
  7. HEPARIN SODIUM [Suspect]
     Route: 065
     Dates: start: 20080101
  8. HEPARIN SODIUM [Suspect]
     Route: 065
     Dates: start: 20080101
  9. HEPARIN SODIUM [Suspect]
     Route: 065
     Dates: start: 20080101
  10. HEPARIN SODIUM 5,000 UNITS IN DEXTROSE 5% [Suspect]
     Indication: PULMONARY EMBOLISM
     Route: 041
     Dates: start: 20071126, end: 20071202
  11. HEPARIN SODIUM 5,000 UNITS IN DEXTROSE 5% [Suspect]
     Route: 041
     Dates: start: 20071209, end: 20071211
  12. HEPARIN SODIUM [Suspect]
     Route: 042
     Dates: start: 20071126, end: 20071126
  13. HEPARIN SODIUM [Suspect]
     Route: 058
     Dates: start: 20071211, end: 20071213
  14. HEPARIN SODIUM [Suspect]
     Route: 065
     Dates: start: 20080101
  15. OXYGEN [Concomitant]
     Indication: CHRONIC OBSTRUCTIVE PULMONARY DISEASE
     Route: 055

REACTIONS (6)
  - LUNG ABSCESS [None]
  - OEDEMA PERIPHERAL [None]
  - PHARYNGEAL OEDEMA [None]
  - RENAL FAILURE ACUTE [None]
  - SEPTIC SHOCK [None]
  - URINE OUTPUT DECREASED [None]
